FAERS Safety Report 23274560 (Version 1)
Quarter: 2023Q4

REPORT INFORMATION
  Report Type: Spontaneous
  Country: US (occurrence: US)
  Receive Date: 20231208
  Receipt Date: 20231208
  Transmission Date: 20240110
  Serious: No
  Sender: FDA-Public Use
  Company Number: US-AMGEN-USASP2023217917

PATIENT
  Age: 28 Year
  Sex: Male

DRUGS (9)
  1. RITUXIMAB [Suspect]
     Active Substance: RITUXIMAB
     Indication: Pemphigus
     Dosage: 1000 MILLIGRAM, Q2WK
     Route: 042
  2. KETOCONAZOLE [Concomitant]
     Active Substance: KETOCONAZOLE
     Indication: Pemphigus
     Dosage: UNK
     Route: 061
  3. MICONAZOLE [Concomitant]
     Active Substance: MICONAZOLE
     Indication: Pemphigus
     Dosage: UNK
     Route: 061
  4. TERBINAFINE [Concomitant]
     Active Substance: TERBINAFINE
     Indication: Pemphigus
     Dosage: UNK
     Route: 048
  5. SODIUM SULFACETAMIDE [Concomitant]
     Active Substance: SULFACETAMIDE SODIUM
     Indication: Pemphigus
     Dosage: UNK
     Route: 065
  6. HYDROCORTISONE [Concomitant]
     Active Substance: HYDROCORTISONE
     Indication: Pemphigus
     Dosage: UNK
     Route: 061
  7. CLOBETASOL [Concomitant]
     Active Substance: CLOBETASOL
     Indication: Pemphigus
     Dosage: UNK
     Route: 065
  8. PREDNISONE [Concomitant]
     Active Substance: PREDNISONE
     Indication: Pemphigus
     Dosage: 60 MILLIGRAM
     Route: 065
  9. TACROLIMUS [Concomitant]
     Active Substance: TACROLIMUS
     Indication: Pemphigus
     Dosage: UNK UNK, BID FOR THREE MONTHS
     Route: 061

REACTIONS (2)
  - Drug effective for unapproved indication [Unknown]
  - Off label use [Unknown]
